FAERS Safety Report 13705077 (Version 1)
Quarter: 2017Q2

REPORT INFORMATION
  Report Type: Spontaneous
  Country: US (occurrence: US)
  Receive Date: 20170629
  Receipt Date: 20170629
  Transmission Date: 20170830
  Serious: Yes (Other)
  Sender: FDA-Public Use
  Company Number: None

PATIENT
  Age: 53 Year
  Sex: Female
  Weight: 55.35 kg

DRUGS (8)
  1. BUPROPION HCL XL 150 MG [Suspect]
     Active Substance: BUPROPION HYDROCHLORIDE
     Indication: ANXIETY
     Dosage: ?          OTHER STRENGTH:MG;QUANTITY:1 CAPSULE(S);?
     Route: 048
     Dates: start: 20170620, end: 20170627
  2. MAGNESIUM CHLORIDE. [Concomitant]
     Active Substance: MAGNESIUM CHLORIDE
  3. METOPROLOL. [Concomitant]
     Active Substance: METOPROLOL
  4. PROGESTERONE. [Concomitant]
     Active Substance: PROGESTERONE
  5. CLONAZEPAM. [Concomitant]
     Active Substance: CLONAZEPAM
  6. VITAMIN D3 [Concomitant]
     Active Substance: CHOLECALCIFEROL
  7. MULTIVITAMIN ^ALIVE FOR WOMEN 50+^ [Concomitant]
  8. NIACIN. [Concomitant]
     Active Substance: NIACIN

REACTIONS (12)
  - Vertigo [None]
  - Impaired driving ability [None]
  - Product quality issue [None]
  - Thinking abnormal [None]
  - Feeling of despair [None]
  - Mood swings [None]
  - Product substitution issue [None]
  - Impaired work ability [None]
  - Insomnia [None]
  - Malaise [None]
  - Crying [None]
  - Depression [None]

NARRATIVE: CASE EVENT DATE: 20170627
